FAERS Safety Report 12563320 (Version 1)
Quarter: 2016Q3

REPORT INFORMATION
  Report Type: Not Available
  Country: ZA (occurrence: ZA)
  Receive Date: 20160715
  Receipt Date: 20160715
  Transmission Date: 20161109
  Serious: Yes (Death)
  Sender: FDA-Public Use
  Company Number: ZA-ANIPHARMA-2016-ZA-000003

PATIENT
  Age: 9 Year
  Sex: Female

DRUGS (1)
  1. INDERAL LA [Suspect]
     Active Substance: PROPRANOLOL HYDROCHLORIDE
     Dosage: 4 MG/KG DAILY
     Route: 065

REACTIONS (3)
  - Intestinal ischaemia [Fatal]
  - Pneumatosis intestinalis [Fatal]
  - Gastrointestinal necrosis [Fatal]
